FAERS Safety Report 5095674-9 (Version None)
Quarter: 2006Q3

REPORT INFORMATION
  Report Type: 
  Country: None (occurrence: None)
  Receive Date: 20060731
  Receipt Date: 20060427
  Transmission Date: 20061208
  Serious: No
  Sender: FDA-Public Use
  Company Number: 2006PV012961

PATIENT
  Age: 57 Year
  Sex: Female
  Weight: 140.6151 kg

DRUGS (5)
  1. BYETTA [Suspect]
     Indication: DIABETES MELLITUS NON-INSULIN-DEPENDENT
     Dosage: 10 MCG; BID; SC, SEE IMAGE
     Route: 058
  2. DIOVAN HCT [Concomitant]
  3. GLIPIZIDE [Concomitant]
  4. TAZITA [Concomitant]
  5. METOPROLOL TARTRATE [Concomitant]

REACTIONS (3)
  - BLOOD PRESSURE DECREASED [None]
  - DECREASED APPETITE [None]
  - WEIGHT DECREASED [None]
